FAERS Safety Report 11289490 (Version 1)
Quarter: 2015Q3

REPORT INFORMATION
  Report Type: Spontaneous
  Country: US (occurrence: US)
  Receive Date: 20150721
  Receipt Date: 20150721
  Transmission Date: 20151125
  Serious: No
  Sender: FDA-Public Use
  Company Number: US-GALDERMA-US15000292

PATIENT
  Age: 54 Year
  Sex: Female

DRUGS (2)
  1. ORACEA [Suspect]
     Active Substance: DOXYCYCLINE
     Indication: ROSACEA
     Route: 048
     Dates: start: 201501, end: 201501
  2. ORACEA [Suspect]
     Active Substance: DOXYCYCLINE
     Dosage: 40 MG
     Route: 048
     Dates: start: 201501, end: 20150123

REACTIONS (3)
  - Palpitations [Recovered/Resolved]
  - Anxiety [Recovered/Resolved]
  - Feeling jittery [Recovered/Resolved]

NARRATIVE: CASE EVENT DATE: 201501
